FAERS Safety Report 11589667 (Version 4)
Quarter: 2017Q1

REPORT INFORMATION
  Report Type: Spontaneous
  Country: US (occurrence: US)
  Receive Date: 20151002
  Receipt Date: 20170116
  Transmission Date: 20170428
  Serious: Yes (Other)
  Sender: FDA-Public Use
  Company Number: US-JNJFOC-20150911810

PATIENT
  Sex: Male

DRUGS (4)
  1. RISPERDAL [Suspect]
     Active Substance: RISPERIDONE
     Indication: AUTISM
     Route: 048
     Dates: start: 20031029, end: 20031209
  2. RISPERIDONE. [Suspect]
     Active Substance: RISPERIDONE
     Indication: AUTISM
     Route: 065
     Dates: start: 20031209, end: 2003
  3. RISPERDAL [Suspect]
     Active Substance: RISPERIDONE
     Indication: AUTISM
     Route: 048
     Dates: start: 20011030, end: 20030401
  4. RISPERIDONE. [Suspect]
     Active Substance: RISPERIDONE
     Indication: AUTISM
     Dosage: 0.25 MG , 4 TIMES A DAY
     Route: 065
     Dates: start: 20030731

REACTIONS (3)
  - Hyperprolactinaemia [Unknown]
  - Gynaecomastia [Unknown]
  - Abnormal weight gain [Unknown]

NARRATIVE: CASE EVENT DATE: 2002
